FAERS Safety Report 19185395 (Version 3)
Quarter: 2022Q2

REPORT INFORMATION
  Report Type: Report from Study
  Country: US (occurrence: US)
  Receive Date: 20210427
  Receipt Date: 20220611
  Transmission Date: 20220721
  Serious: No
  Sender: FDA-Public Use
  Company Number: NVSC2021US095023

PATIENT
  Sex: Male

DRUGS (1)
  1. GILENYA [Suspect]
     Active Substance: FINGOLIMOD HYDROCHLORIDE
     Indication: Multiple sclerosis
     Dosage: 0.5 MG, QD
     Route: 048
     Dates: start: 20160425

REACTIONS (5)
  - Intervertebral disc protrusion [Unknown]
  - Headache [Unknown]
  - Hypersensitivity [Unknown]
  - Cough [Unknown]
  - Product dose omission issue [Unknown]
